FAERS Safety Report 13889931 (Version 1)
Quarter: 2017Q3

REPORT INFORMATION
  Report Type: Report from Study
  Country: US (occurrence: US)
  Receive Date: 20170822
  Receipt Date: 20170822
  Transmission Date: 20171127
  Serious: Yes (Hospitalization)
  Sender: FDA-Public Use
  Company Number: US-ROCHE-1977575

PATIENT
  Age: 68 Year
  Sex: Female
  Weight: 90.4 kg

DRUGS (3)
  1. CARBOPLATIN. [Suspect]
     Active Substance: CARBOPLATIN
     Indication: FALLOPIAN TUBE CANCER
     Dosage: LAST DOSE ADMINISTERED ON 17/MAR/2017.
     Route: 065
     Dates: start: 20170308
  2. BEVACIZUMAB. [Suspect]
     Active Substance: BEVACIZUMAB
     Indication: FALLOPIAN TUBE CANCER
     Dosage: LAST DOSE ADMINISTERED ON 17/MAR/2017
     Route: 065
     Dates: start: 20170308
  3. GEMCITABINE HYDROCHLORIDE. [Suspect]
     Active Substance: GEMCITABINE HYDROCHLORIDE
     Indication: FALLOPIAN TUBE CANCER
     Dosage: LAST DOSE ADMINISTERED ON 17/MAR/2017
     Route: 065
     Dates: start: 20170308

REACTIONS (4)
  - Dyspnoea [Not Recovered/Not Resolved]
  - Fatigue [Not Recovered/Not Resolved]
  - Platelet count decreased [Not Recovered/Not Resolved]
  - Face oedema [Not Recovered/Not Resolved]

NARRATIVE: CASE EVENT DATE: 20170529
